FAERS Safety Report 5781251-0 (Version None)
Quarter: 2008Q2

REPORT INFORMATION
  Report Type: 
  Country: None (occurrence: None)
  Receive Date: 20080618
  Receipt Date: 20080606
  Transmission Date: 20081010
  Serious: Yes (Other)
  Sender: FDA-Public Use
  Company Number: S08-USA-01581-01

PATIENT
  Age: 31 Year
  Sex: Female
  Weight: 124.2856 kg

DRUGS (6)
  1. LEXAPRO [Suspect]
     Indication: ANXIETY
     Dosage: 10 MG QD PO
     Route: 048
     Dates: start: 20070801, end: 20070901
  2. LEXAPRO [Suspect]
     Indication: DEPRESSION
     Dosage: 10 MG QD PO
     Route: 048
     Dates: start: 20070801, end: 20070901
  3. CLONAZEPAM [Suspect]
     Indication: ANXIETY
     Dosage: 0.5 MG PRN
     Dates: end: 20070901
  4. PROTONIX [Suspect]
     Indication: GASTROOESOPHAGEAL REFLUX DISEASE
     Dosage: 40 MG QD
     Dates: end: 20070901
  5. LABETALOL HCL [Concomitant]
  6. HYDROCHLOROTHIAZIDE [Concomitant]

REACTIONS (10)
  - ARTHRALGIA [None]
  - BLOOD POTASSIUM DECREASED [None]
  - GALLBLADDER DISORDER [None]
  - HEPATITIS ACUTE [None]
  - NEUTROPHIL COUNT INCREASED [None]
  - PROTEIN TOTAL DECREASED [None]
  - PRURITUS [None]
  - PRURITUS GENERALISED [None]
  - PYREXIA [None]
  - WHITE BLOOD CELL COUNT INCREASED [None]
